FAERS Safety Report 6756340-4 (Version None)
Quarter: 2010Q2

REPORT INFORMATION
  Report Type: 
  Country: None (occurrence: None)
  Receive Date: 20100604
  Receipt Date: 20100531
  Transmission Date: 20101027
  Serious: Yes (Hospitalization)
  Sender: FDA-Public Use
  Company Number: DE-ROCHE-706589

PATIENT
  Age: 65 Year
  Sex: Male
  Weight: 60 kg

DRUGS (6)
  1. KEVATRIL [Suspect]
     Dosage: DOSE FORM: AMPOULE
     Route: 042
     Dates: start: 20100528
  2. RITUXIMAB [Suspect]
     Route: 042
     Dates: start: 20100527
  3. RANITIDINE [Suspect]
     Dosage: DOSE FORM: AMPOULE
     Route: 042
     Dates: start: 20100527
  4. CLEMASTINE FUMARATE [Suspect]
     Dosage: DOSE FORM: AMPOULE
     Route: 042
     Dates: start: 20100527
  5. BENDAMUSTINE [Suspect]
     Route: 042
     Dates: start: 20100528
  6. PREDNISOLONE SODIUM SUCCINATE INJ [Concomitant]
     Route: 042
     Dates: start: 20100528

REACTIONS (4)
  - CHILLS [None]
  - HAEMATURIA [None]
  - NAUSEA [None]
  - VOMITING [None]
